FAERS Safety Report 9055230 (Version 1)
Quarter: 2013Q1

REPORT INFORMATION
  Report Type: Spontaneous
  Country: US (occurrence: US)
  Receive Date: 20130206
  Receipt Date: 20130206
  Transmission Date: 20140127
  Serious: Yes (Hospitalization)
  Sender: FDA-Public Use
  Company Number: 2013SP000372

PATIENT
  Sex: Male

DRUGS (1)
  1. LATUDA [Suspect]
     Indication: SCHIZOPHRENIA
     Route: 048

REACTIONS (8)
  - Fluid intake restriction [Recovered/Resolved]
  - Body temperature increased [Recovered/Resolved]
  - Urine output decreased [Recovered/Resolved]
  - Confusional state [Recovered/Resolved]
  - Musculoskeletal stiffness [Recovered/Resolved]
  - Disorientation [Recovered/Resolved]
  - Cogwheel rigidity [Recovered/Resolved]
  - Blood creatine phosphokinase increased [Recovered/Resolved]
